FAERS Safety Report 21466194 (Version 1)
Quarter: 2022Q4

REPORT INFORMATION
  Report Type: Spontaneous
  Country: US (occurrence: None)
  Receive Date: 20221016
  Receipt Date: 20221016
  Transmission Date: 20230112
  Serious: No
  Sender: FDA-Public Use
  Company Number: None

PATIENT
  Sex: Female

DRUGS (7)
  1. KISQALI [Suspect]
     Active Substance: RIBOCICLIB
  2. CALCIUM plus d 500 mg tab [Concomitant]
  3. EXEMESTANE [Concomitant]
     Active Substance: EXEMESTANE
  4. FASLODEX [Concomitant]
     Active Substance: FULVESTRANT
  5. LETROZOLE [Concomitant]
     Active Substance: LETROZOLE
  6. TYLENOL [Concomitant]
     Active Substance: ACETAMINOPHEN
  7. XGEVA [Concomitant]
     Active Substance: DENOSUMAB

REACTIONS (2)
  - Breast pain [None]
  - Drug ineffective [None]
